FAERS Safety Report 4499662-2 (Version None)
Quarter: 2004Q4

REPORT INFORMATION
  Report Type: 
  Country: None (occurrence: None)
  Receive Date: 20041112
  Receipt Date: 20041101
  Transmission Date: 20050328
  Serious: Yes (Other)
  Sender: FDA-Public Use
  Company Number: GB-ABBOTT-04P-167-0279682-00

PATIENT
  Age: 22 Year
  Sex: Female

DRUGS (4)
  1. CLARITHROMYCIN [Suspect]
     Indication: PERINEAL ABSCESS
  2. CLARITHROMYCIN [Suspect]
  3. RIFABUTIN [Suspect]
     Indication: PERINEAL ABSCESS
  4. RIFABUTIN [Suspect]

REACTIONS (3)
  - HYPOPYON [None]
  - UVEITIS [None]
  - VISION BLURRED [None]
